FAERS Safety Report 26001114 (Version 1)
Quarter: 2025Q4

REPORT INFORMATION
  Report Type: Spontaneous
  Country: ZA (occurrence: ZA)
  Receive Date: 20251105
  Receipt Date: 20251105
  Transmission Date: 20260118
  Serious: Yes (Life-Threatening, Other)
  Sender: NOVO NORDISK
  Company Number: ZA-NOVOPROD-1548693

PATIENT
  Age: 45 Year
  Sex: Female

DRUGS (1)
  1. OZEMPIC [Suspect]
     Active Substance: SEMAGLUTIDE
     Indication: Product used for unknown indication
     Dosage: TYPICALLY IN 3-MONTH CYCLES

REACTIONS (1)
  - Colorectal adenocarcinoma [Unknown]
